FAERS Safety Report 7978987 (Version 6)
Quarter: 2013Q1

REPORT INFORMATION
  Report Type: Report from Study
  Country: US (occurrence: US)
  Receive Date: 20110607
  Receipt Date: 20130320
  Transmission Date: 20140127
  Serious: Yes (Other)
  Sender: FDA-Public Use
  Company Number: US-UCBSA-023891

PATIENT
  Sex: Male
  Weight: 4.09 kg

DRUGS (7)
  1. KEPPRA [Suspect]
     Indication: EPILEPSY
     Dosage: PRIOR TO CONCEPTION
     Route: 064
  2. KEPPRA [Suspect]
     Indication: EPILEPSY
     Route: 064
     Dates: start: 20101005
  3. KEPPRA [Suspect]
     Indication: EPILEPSY
     Route: 064
     Dates: start: 20110105, end: 20110204
  4. KEPPRA [Suspect]
     Indication: EPILEPSY
     Route: 063
     Dates: start: 2011
  5. FOLIC ACID [Concomitant]
     Indication: PREGNANCY
     Route: 064
     Dates: end: 20110204
  6. PRENATAL VITAMIN [Concomitant]
     Indication: PREGNANCY
     Dosage: 1 CAPSULE
     Route: 064
     Dates: end: 20110204
  7. FLUZONE VACCINE [Concomitant]
     Indication: PREGNANCY
     Dosage: 1 DOSE
     Route: 064
     Dates: start: 20100923

REACTIONS (3)
  - Congenital hydronephrosis [Recovered/Resolved]
  - Foetal exposure during pregnancy [Recovered/Resolved]
  - Exposure during breast feeding [Not Recovered/Not Resolved]
